FAERS Safety Report 8349412-4 (Version None)
Quarter: 2012Q2

REPORT INFORMATION
  Report Type: 
  Country: None (occurrence: None)
  Receive Date: 20120510
  Receipt Date: 20120503
  Transmission Date: 20120825
  Serious: Yes (Hospitalization)
  Sender: FDA-Public Use
  Company Number: GR-B.I. PHARMACEUTICALS,INC./RIDGEFIELD-2012-EU-02485GB

PATIENT
  Age: 67 Year
  Sex: Female

DRUGS (2)
  1. PERINDOPRIL ERBUMINE [Concomitant]
     Indication: HYPERTENSION
  2. ATROVENT [Suspect]
     Indication: ASTHMA
     Route: 055
     Dates: start: 20030101, end: 20120301

REACTIONS (3)
  - ANGLE CLOSURE GLAUCOMA [None]
  - ANURIA [None]
  - VISUAL IMPAIRMENT [None]
